FAERS Safety Report 5332779-9 (Version None)
Quarter: 2007Q2

REPORT INFORMATION
  Report Type: 
  Country: None (occurrence: None)
  Receive Date: 20070518
  Receipt Date: 20070509
  Transmission Date: 20071010
  Serious: Yes (Hospitalization)
  Sender: FDA-Public Use
  Company Number: FABR-11990

PATIENT
  Age: 40 Year

DRUGS (2)
  1. FABRAZYME [Suspect]
     Indication: FABRY'S DISEASE
     Dates: start: 20070101
  2. INTERFERON [Concomitant]

REACTIONS (1)
  - MULTIPLE SCLEROSIS [None]
